FAERS Safety Report 19011464 (Version 1)
Quarter: 2021Q1

REPORT INFORMATION
  Report Type: Spontaneous
  Country: US (occurrence: US)
  Receive Date: 20210315
  Receipt Date: 20210315
  Transmission Date: 20210420
  Serious: No
  Sender: FDA-Public Use
  Company Number: None

PATIENT
  Age: 72 Year
  Sex: Male

DRUGS (1)
  1. ICOSAPENT (ICOSAPENT ETHYL 1GM CAP) [Suspect]
     Active Substance: ICOSAPENT ETHYL
     Indication: STENT PLACEMENT
     Route: 048
     Dates: start: 20210114, end: 20210130

REACTIONS (1)
  - Diarrhoea [None]

NARRATIVE: CASE EVENT DATE: 20210130
